FAERS Safety Report 24364897 (Version 1)
Quarter: 2024Q3

REPORT INFORMATION
  Report Type: Spontaneous
  Country: CA (occurrence: CA)
  Receive Date: 20240926
  Receipt Date: 20240926
  Transmission Date: 20241016
  Serious: Yes (Hospitalization)
  Sender: ASTELLAS
  Company Number: CA-ASTELLAS-2024-AER-007855

PATIENT
  Age: 63 Year
  Weight: 73 kg

DRUGS (2)
  1. AMBISOME [Suspect]
     Active Substance: AMPHOTERICIN B
     Indication: Product used for unknown indication
     Route: 065
  2. FLUCONAZOLE [Suspect]
     Active Substance: FLUCONAZOLE
     Indication: Antifungal treatment
     Route: 048

REACTIONS (3)
  - Acute kidney injury [Recovered/Resolved]
  - Myopathy [Recovered/Resolved]
  - Toxicity to various agents [Recovered/Resolved]
